FAERS Safety Report 9742586 (Version 3)
Quarter: 2015Q3

REPORT INFORMATION
  Report Type: Spontaneous
  Country: US (occurrence: US)
  Receive Date: 20131210
  Receipt Date: 20150804
  Transmission Date: 20151125
  Serious: No
  Sender: FDA-Public Use
  Company Number: US-GILEAD-2009-0024692

PATIENT
  Age: 70 Year
  Sex: Female
  Weight: 61.23 kg

DRUGS (15)
  1. DIGOXIN. [Concomitant]
     Active Substance: DIGOXIN
  2. LETAIRIS [Suspect]
     Active Substance: AMBRISENTAN
     Indication: PULMONARY ARTERIAL HYPERTENSION
     Route: 048
     Dates: start: 20080507
  3. RESTASIS [Concomitant]
     Active Substance: CYCLOSPORINE
  4. PROCARDIA XL [Concomitant]
     Active Substance: NIFEDIPINE
  5. CALCIUM [Concomitant]
     Active Substance: CALCIUM
  6. PREDNISONE. [Concomitant]
     Active Substance: PREDNISONE
  7. ERGOCALCIFEROL/NICOTINAMIDE/RETINOL/ASCORBIC ACID/FOLIC ACID/PANTHENOL/RIBOFLAVIN/THIAMINE HYDROCHLO [Concomitant]
  8. GLUCOSAMINE [Concomitant]
     Active Substance: GLUCOSAMINE
  9. LASIX [Concomitant]
     Active Substance: FUROSEMIDE
  10. POTASSIUM CL [Concomitant]
     Active Substance: POTASSIUM CHLORIDE
  11. ZOCOR [Concomitant]
     Active Substance: SIMVASTATIN
  12. COUMADIN [Concomitant]
     Active Substance: WARFARIN SODIUM
  13. REVATIO [Concomitant]
     Active Substance: SILDENAFIL CITRATE
  14. ACETYL-D-GLUCOSAMINE [Concomitant]
  15. OXYGEN. [Concomitant]
     Active Substance: OXYGEN

REACTIONS (1)
  - Back pain [Unknown]
